FAERS Safety Report 15288168 (Version 1)
Quarter: 2018Q3

REPORT INFORMATION
  Report Type: Spontaneous
  Country: US (occurrence: US)
  Receive Date: 20180802
  Receipt Date: 20180802
  Transmission Date: 20181010
  Serious: Yes (Disabling)
  Sender: FDA-Public Use
  Company Number: None

PATIENT
  Age: 75 Year
  Sex: Female

DRUGS (6)
  1. CQ10 [Concomitant]
     Active Substance: UBIDECARENONE
  2. MG [Concomitant]
     Active Substance: MAGNESIUM
  3. LEVAQUIN [Suspect]
     Active Substance: LEVOFLOXACIN
     Indication: URINARY TRACT INFECTION
     Dosage: ?          QUANTITY:30 DF DOSAGE FORM;?
     Route: 048
     Dates: start: 20141018, end: 20141027
  4. VITAMIN C [Concomitant]
     Active Substance: ASCORBIC ACID
  5. TUMERIC [Concomitant]
     Active Substance: HERBALS\TURMERIC
  6. MULTI VITAMIN [Concomitant]
     Active Substance: VITAMINS

REACTIONS (7)
  - Neuropathy peripheral [None]
  - Mobility decreased [None]
  - Joint swelling [None]
  - Musculoskeletal discomfort [None]
  - Arthralgia [None]
  - Gait disturbance [None]
  - Oedema [None]

NARRATIVE: CASE EVENT DATE: 20141025
